FAERS Safety Report 26155022 (Version 1)
Quarter: 2025Q4

REPORT INFORMATION
  Report Type: Spontaneous
  Country: US (occurrence: US)
  Receive Date: 20251215
  Receipt Date: 20251215
  Transmission Date: 20260119
  Serious: No
  Sender: ELI LILLY AND COMPANY
  Company Number: US-ELI_LILLY_AND_COMPANY-US202512013401

PATIENT
  Age: 70 Year
  Sex: Female

DRUGS (12)
  1. KISUNLA [Suspect]
     Active Substance: DONANEMAB-AZBT
     Indication: Dementia Alzheimer^s type
     Dosage: UNK UNK, UNKNOWN
     Route: 042
     Dates: start: 20250715
  2. KISUNLA [Suspect]
     Active Substance: DONANEMAB-AZBT
     Dosage: 1400 MG, UNKNOWN
     Route: 042
     Dates: end: 20250815
  3. LIPITOR [Concomitant]
     Active Substance: ATORVASTATIN CALCIUM
     Indication: Hyperlipidaemia
     Dosage: UNK
     Dates: start: 20250929
  4. LEVOTHYROXINE [Concomitant]
     Active Substance: LEVOTHYROXINE
     Indication: Product used for unknown indication
     Dosage: UNK
     Dates: start: 20250520
  5. NORVASC [Concomitant]
     Active Substance: AMLODIPINE BESYLATE
     Indication: Hypertension
     Dosage: UNK
     Dates: start: 20251021
  6. FARXIGA [Concomitant]
     Active Substance: DAPAGLIFLOZIN PROPANEDIOL
     Indication: Product used for unknown indication
     Dosage: UNK
     Dates: start: 20250520
  7. OZEMPIC [Concomitant]
     Active Substance: SEMAGLUTIDE
     Indication: Product used for unknown indication
     Dosage: UNK
     Dates: start: 20250520
  8. INSULIN GLARGINE [Concomitant]
     Active Substance: INSULIN GLARGINE
     Indication: Type 2 diabetes mellitus
     Dosage: UNK
     Dates: start: 20250520
  9. COREG [Concomitant]
     Active Substance: CARVEDILOL
     Indication: Hypertension
     Dosage: UNK
     Dates: start: 20250519
  10. GLUCOTROL [Concomitant]
     Active Substance: GLIPIZIDE
     Indication: Type 2 diabetes mellitus
     Dates: start: 20251020
  11. DIOVAN [Concomitant]
     Active Substance: VALSARTAN
     Indication: Hypertension
     Dates: start: 20251021
  12. GLUCOPHAGE [Concomitant]
     Active Substance: METFORMIN HYDROCHLORIDE
     Indication: Type 2 diabetes mellitus
     Dates: start: 20250929

REACTIONS (1)
  - Amyloid related imaging abnormality-oedema/effusion [Not Recovered/Not Resolved]
